FAERS Safety Report 9706667 (Version 2)
Quarter: 2013Q4

REPORT INFORMATION
  Report Type: Spontaneous
  Country: US (occurrence: US)
  Receive Date: 20131125
  Receipt Date: 20131213
  Transmission Date: 20140711
  Serious: Yes (Death)
  Sender: FDA-Public Use
  Company Number: US-JNJFOC-20131108689

PATIENT
  Sex: Female

DRUGS (9)
  1. RISPERIDONE [Suspect]
     Indication: DEPRESSION
     Route: 048
  2. RISPERIDONE [Suspect]
     Indication: DEPRESSION
     Route: 048
     Dates: start: 2009, end: 2009
  3. RISPERIDONE [Suspect]
     Indication: ANXIETY
     Route: 048
     Dates: start: 2009, end: 2009
  4. RISPERIDONE [Suspect]
     Indication: ANXIETY
     Route: 048
  5. LORAZEPAM [Suspect]
     Indication: DEPRESSION
     Route: 065
  6. LORAZEPAM [Suspect]
     Indication: ANXIETY
     Route: 065
  7. LISINOPRIL [Concomitant]
     Indication: BLOOD PRESSURE
     Route: 048
  8. LOPRESSOR [Concomitant]
     Indication: BLOOD PRESSURE
     Route: 048
  9. FOSAMAX [Concomitant]
     Indication: OSTEOPOROSIS
     Route: 048

REACTIONS (10)
  - Lung cancer metastatic [Fatal]
  - Off label use [Unknown]
  - Anxiety [Unknown]
  - Overdose [Unknown]
  - Constipation [Unknown]
  - Cough [Unknown]
  - Fear [Unknown]
  - Feeling abnormal [Unknown]
  - Drug prescribing error [Unknown]
  - Product physical issue [Unknown]
